FAERS Safety Report 8906443 (Version 1)
Quarter: 2012Q4

REPORT INFORMATION
  Report Type: Spontaneous
  Country: US (occurrence: None)
  Receive Date: 20121112
  Receipt Date: 20121112
  Transmission Date: 20130627
  Serious: No
  Sender: FDA-Public Use
  Company Number: None

PATIENT
  Age: 55 Year
  Sex: Male
  Weight: 104 kg

DRUGS (14)
  1. DOCETAXEL [Suspect]
     Indication: PROSTATE CANCER
     Dosage: 75 mg/m2 (171 mg) IV every 21 days
     Route: 042
     Dates: start: 20120920
  2. DEGARELIX [Concomitant]
  3. DENOSUMAB [Concomitant]
  4. ALFUZOSIN [Concomitant]
  5. ASPIRIN [Concomitant]
  6. VITAMIN D [Concomitant]
  7. ERGOCALCIFEROL [Concomitant]
  8. IBUPROFEN [Concomitant]
  9. INDOMETHACIN [Concomitant]
  10. COLCHICINE [Concomitant]
  11. GINGER ROOT [Concomitant]
  12. FEBUXOSTAT [Concomitant]
  13. CALCIUM CARBONATE (TUMS(R)) [Concomitant]
  14. SIMETHICONE [Concomitant]

REACTIONS (5)
  - Flushing [None]
  - Paraesthesia oral [None]
  - Dyspnoea [None]
  - Chest discomfort [None]
  - Infusion related reaction [None]
